FAERS Safety Report 4324766-4 (Version None)
Quarter: 2004Q1

REPORT INFORMATION
  Report Type: 
  Country: None (occurrence: None)
  Receive Date: 20040325
  Receipt Date: 20040325
  Transmission Date: 20041129
  Serious: No
  Sender: FDA-Public Use
  Company Number: None

PATIENT
  Age: 70 Year
  Sex: Male
  Weight: 53 kg

DRUGS (3)
  1. VELCADE [Suspect]
     Indication: MULTIPLE MYELOMA
     Dosage: 1.3MG/M2 TWICE WEEK INTRAVENOUS
     Route: 042
     Dates: start: 20031120, end: 20031201
  2. VELCADE [Suspect]
     Indication: MULTIPLE MYELOMA
     Dosage: 1.3MG/M2 TWICE WEEK INTRAVENOUS
     Route: 042
     Dates: start: 20031211, end: 20031222
  3. ZOFRAN [Concomitant]

REACTIONS (1)
  - BRONCHIAL FISTULA [None]
